FAERS Safety Report 7202217-X (Version None)
Quarter: 2010Q4

REPORT INFORMATION
  Report Type: 
  Country: None (occurrence: None)
  Receive Date: 20101229
  Receipt Date: 20101222
  Transmission Date: 20110411
  Serious: Yes (Hospitalization)
  Sender: FDA-Public Use
  Company Number: FR-BRISTOL-MYERS SQUIBB COMPANY-15460322

PATIENT
  Age: 86 Year
  Sex: Female

DRUGS (7)
  1. APROVEL [Suspect]
  2. LASIX [Suspect]
  3. SERESTA [Suspect]
     Dosage: 1 DF=0.5/DAY OF 10 MG
     Dates: start: 20100705
  4. RISPERDAL [Suspect]
     Dosage: 1 DF=HALF OF A 1 MG TABLET
     Dates: start: 20100705
  5. RIVOTRIL [Suspect]
     Dates: start: 20100706
  6. KARDEGIC [Concomitant]
     Route: 048
  7. HEMIGOXINE NATIVELLE [Concomitant]
     Route: 048

REACTIONS (6)
  - ABNORMAL BEHAVIOUR [None]
  - CARDIAC FAILURE [None]
  - FALL [None]
  - HYPERCREATININAEMIA [None]
  - HYPONATRAEMIA [None]
  - JOINT DISLOCATION [None]
